FAERS Safety Report 6819313-9 (Version None)
Quarter: 2010Q3

REPORT INFORMATION
  Report Type: 
  Country: None (occurrence: None)
  Receive Date: 20100707
  Receipt Date: 20100630
  Transmission Date: 20110219
  Serious: Yes (Death, Hospitalization)
  Sender: FDA-Public Use
  Company Number: US-BAYER-201018391NA

PATIENT
  Age: 76 Year
  Sex: Male

DRUGS (7)
  1. NEXAVAR [Suspect]
     Indication: GASTROINTESTINAL STROMAL TUMOUR
     Dosage: TOTAL DAILY DOSE: 400 MG  UNIT DOSE: 200 MG
     Route: 048
     Dates: start: 20100115, end: 20100315
  2. NEXAVAR [Suspect]
     Dosage: TOTAL DAILY DOSE: 800 MG  UNIT DOSE: 200 MG
     Route: 048
     Dates: start: 20100316, end: 20100401
  3. SINEMET CR [Concomitant]
  4. COMTAN [Concomitant]
  5. MIRAPEX [Concomitant]
  6. PROTONIX [Concomitant]
  7. AMANTADINE HCL [Concomitant]

REACTIONS (6)
  - CONDITION AGGRAVATED [None]
  - DIZZINESS [None]
  - GASTROINTESTINAL STROMAL TUMOUR [None]
  - THROMBOSIS [None]
  - URINARY TRACT INFECTION [None]
  - WEIGHT DECREASED [None]
